FAERS Safety Report 6116143-0 (Version None)
Quarter: 2009Q1

REPORT INFORMATION
  Report Type: 
  Country: None (occurrence: None)
  Receive Date: 20090314
  Receipt Date: 20081201
  Transmission Date: 20090719
  Serious: No
  Sender: FDA-Public Use
  Company Number: US-ABBOTT-08P-163-0490414-00

PATIENT
  Sex: Male
  Weight: 88.53 kg

DRUGS (8)
  1. HUMIRA [Suspect]
     Indication: PSORIATIC ARTHROPATHY
     Route: 058
     Dates: start: 20080101
  2. METHOTREXATE [Concomitant]
     Indication: PSORIATIC ARTHROPATHY
  3. ATORVASTATIN CALCIUM [Concomitant]
     Indication: BLOOD CHOLESTEROL INCREASED
  4. METOPROLOL SUCCINATE [Concomitant]
     Indication: HYPERTENSION
  5. VALIUM [Concomitant]
     Indication: DEPRESSION
  6. VALIUM [Concomitant]
     Indication: ANXIETY
  7. DOXAPEN [Concomitant]
     Indication: DEPRESSION
  8. DOXAPEN [Concomitant]
     Indication: ANXIETY

REACTIONS (1)
  - SKIN LESION [None]
